FAERS Safety Report 21387587 (Version 1)
Quarter: 2022Q3

REPORT INFORMATION
  Report Type: Spontaneous
  Country: GB (occurrence: GB)
  Receive Date: 20220928
  Receipt Date: 20220928
  Transmission Date: 20221027
  Serious: Yes (Hospitalization)
  Sender: FDA-Public Use
  Company Number: None

PATIENT

DRUGS (8)
  1. LANSOPRAZOLE [Suspect]
     Active Substance: LANSOPRAZOLE
     Indication: Product used for unknown indication
     Dosage: 1 DOSAGE FORM, AM (ONE TO BE TAKEN EACH MORNING)
     Route: 065
  2. ASPIRIN [Concomitant]
     Active Substance: ASPIRIN
     Dosage: 1 DOSAGE FORM, QD (ONE TO BE TAKEN EACH DAY)
     Route: 065
     Dates: end: 20220926
  3. BISOPROLOL [Concomitant]
     Active Substance: BISOPROLOL
     Dosage: 1 DOSAGE FORM, QD  (ONE TO BE TAKEN ONCE DAILY 28 TABLET)
     Route: 065
  4. FUROSEMIDE [Concomitant]
     Active Substance: FUROSEMIDE
     Dosage: 1 DOSAGE FORM, BID (ONE TO BE TAKEN TWICE A DAY)
     Route: 065
  5. LACTULOSE [Concomitant]
     Active Substance: LACTULOSE
     Dosage: 10 MILLILITER, BID (3.1-3.7G/5ML ORAL SOLUTION 10ML TWICE A DAY (8AM AND 10PM))
     Route: 065
  6. SPIRONOLACTONE [Concomitant]
     Active Substance: SPIRONOLACTONE
     Dosage: (TWO TO BE TAKEN EACH MORNING - TAKING 1 BD)
     Route: 065
  7. THIAMINE [Concomitant]
     Active Substance: THIAMINE
     Dosage: 1 DOSAGE FORM, BID (ONE TO BE TAKEN TWICE A DAY)
     Route: 065
  8. CALCIUM CARBONATE\CHOLECALCIFEROL [Concomitant]
     Active Substance: CALCIUM CARBONATE\CHOLECALCIFEROL
     Dosage: 1 DOSAGE FORM, BID (1500MG/400UNIT; CHEW ONE TABLET TWICE A DAY)
     Route: 065

REACTIONS (1)
  - Hyponatraemia [Unknown]
